FAERS Safety Report 15988142 (Version 1)
Quarter: 2019Q1

REPORT INFORMATION
  Report Type: Spontaneous
  Country: US (occurrence: US)
  Receive Date: 20190221
  Receipt Date: 20190221
  Transmission Date: 20190418
  Serious: No
  Sender: FDA-Public Use
  Company Number: US-ROCHE-2267607

PATIENT
  Age: 50 Year
  Sex: Female
  Weight: 74 kg

DRUGS (6)
  1. OCREVUS [Suspect]
     Active Substance: OCRELIZUMAB
     Route: 042
     Dates: start: 20190206
  2. SOLU-MEDROL [Concomitant]
     Active Substance: METHYLPREDNISOLONE SODIUM SUCCINATE
     Route: 065
  3. OCREVUS [Suspect]
     Active Substance: OCRELIZUMAB
     Indication: RELAPSING-REMITTING MULTIPLE SCLEROSIS
     Dosage: FIRST HALF DOSE; ONGOING: NO
     Route: 042
     Dates: start: 201802, end: 201802
  4. OCREVUS [Suspect]
     Active Substance: OCRELIZUMAB
     Dosage: 2ND HALF OF FIRST DOSE ;ONGOING: NO
     Route: 042
     Dates: start: 201802, end: 201802
  5. TYLENOL [Concomitant]
     Active Substance: ACETAMINOPHEN
     Route: 065
  6. OCREVUS [Suspect]
     Active Substance: OCRELIZUMAB
     Dosage: FIRST FULL DOSE ;ONGOING: NO
     Route: 042
     Dates: start: 201808, end: 201808

REACTIONS (9)
  - Fat tissue increased [Recovered/Resolved]
  - Cough [Unknown]
  - Eye swelling [Unknown]
  - Dyspnoea [Unknown]
  - Blood pressure increased [Unknown]
  - Swelling face [Recovered/Resolved]
  - Urticaria [Unknown]
  - Bronchitis [Recovered/Resolved]
  - Bronchospasm [Unknown]

NARRATIVE: CASE EVENT DATE: 201802
